FAERS Safety Report 21931604 (Version 1)
Quarter: 2023Q1

REPORT INFORMATION
  Report Type: Spontaneous
  Country: US (occurrence: US)
  Receive Date: 20230131
  Receipt Date: 20230131
  Transmission Date: 20230418
  Serious: Yes (Death, Hospitalization, Other)
  Sender: FDA-Public Use
  Company Number: US-PFIZER INC-202300041896

PATIENT
  Age: 78 Year
  Sex: Male

DRUGS (6)
  1. DILTIAZEM HYDROCHLORIDE [Suspect]
     Active Substance: DILTIAZEM HYDROCHLORIDE
     Dosage: UNK (INGESTION, EXTENDED RELEASE)
     Route: 048
  2. DONEPEZIL HYDROCHLORIDE [Suspect]
     Active Substance: DONEPEZIL HYDROCHLORIDE
     Dosage: UNK (INGESTION)
     Route: 048
  3. FLECAINIDE [Suspect]
     Active Substance: FLECAINIDE
     Dosage: UNK (INGESTION)
     Route: 048
  4. CITALOPRAM [Suspect]
     Active Substance: CITALOPRAM HYDROBROMIDE
     Dosage: UNK (INGESTION)
     Route: 048
  5. MEMANTINE [Suspect]
     Active Substance: MEMANTINE
     Dosage: UNK (INGESTION)
     Route: 048
  6. ATORVASTATIN [Suspect]
     Active Substance: ATORVASTATIN
     Dosage: UNK (INGESTION)
     Route: 048

REACTIONS (2)
  - Accidental exposure to product [Fatal]
  - Death [Fatal]
